FAERS Safety Report 11189000 (Version 1)
Quarter: 2015Q2

REPORT INFORMATION
  Report Type: Spontaneous
  Country: FR (occurrence: None)
  Receive Date: 20150611
  Receipt Date: 20150611
  Transmission Date: 20150821
  Serious: Yes (Life-Threatening, Hospitalization, Other)
  Sender: FDA-Public Use
  Company Number: ADR-2015-01105

PATIENT
  Age: 32 Year
  Sex: Male

DRUGS (5)
  1. LEXOMIL (BROMAZEPAM) [Concomitant]
     Active Substance: BROMAZEPAM
  2. ZYPREXA [Suspect]
     Active Substance: OLANZAPINE
     Dates: start: 20140511, end: 20140511
  3. CANNABIS (CANNABIS SATIVA) UNKNOWN [Suspect]
     Active Substance: CANNABIS SATIVA SUBSP. INDICA TOP
  4. BACLOFEN (UNKNOWN) [Suspect]
     Active Substance: BACLOFEN
     Indication: ALCOHOLISM
  5. XEROQUEL (QUETIAPINE FUMARATE) [Suspect]
     Active Substance: QUETIAPINE FUMARATE

REACTIONS (9)
  - Confusional state [None]
  - Aphasia [None]
  - Tachycardia [None]
  - Speech disorder [None]
  - Miosis [None]
  - Agitation [None]
  - Obsessive thoughts [None]
  - Aggression [None]
  - Logorrhoea [None]
